FAERS Safety Report 9172243 (Version 1)
Quarter: 2013Q1

REPORT INFORMATION
  Report Type: Report from Study
  Country: JP (occurrence: JP)
  Receive Date: 20130319
  Receipt Date: 20130319
  Transmission Date: 20140127
  Serious: Yes (Other)
  Sender: FDA-Public Use
  Company Number: JP-009507513-1303JPN007901

PATIENT
  Age: 70 Year
  Sex: Female
  Weight: 50 kg

DRUGS (6)
  1. PEGINTRON [Suspect]
     Indication: CHRONIC HEPATITIS C
     Dosage: 1.5 MICROGRAM PER KILOGRAM, QW,DAILY DOSE UNKNOWN
     Route: 058
     Dates: start: 20120904, end: 20130104
  2. REBETOL [Suspect]
     Indication: CHRONIC HEPATITIS C
     Dosage: 600 MG, QD
     Route: 048
     Dates: start: 20120904, end: 20130104
  3. TELAVIC [Suspect]
     Indication: CHRONIC HEPATITIS C
     Dosage: 1500MG,QD
     Route: 048
     Dates: start: 20120904, end: 20120918
  4. TELAVIC [Suspect]
     Dosage: 1000MG,QD
     Route: 048
     Dates: start: 20120919, end: 20121008
  5. TELAVIC [Suspect]
     Dosage: 1250MG,QD
     Route: 048
     Dates: start: 20121009, end: 20121105
  6. TELAVIC [Suspect]
     Dosage: 1500MG,QD
     Route: 048
     Dates: start: 20121106, end: 20130104

REACTIONS (1)
  - Interstitial lung disease [Recovering/Resolving]
